FAERS Safety Report 10255446 (Version 1)
Quarter: 2014Q2

REPORT INFORMATION
  Report Type: Spontaneous
  Country: FR (occurrence: FR)
  Receive Date: 20140624
  Receipt Date: 20140624
  Transmission Date: 20141212
  Serious: Yes (Other)
  Sender: FDA-Public Use
  Company Number: CHPA2014FR008340

PATIENT
  Age: 29 Year
  Sex: Female

DRUGS (1)
  1. SCOPODERM TTS [Suspect]
     Dosage: UNK
     Route: 003
     Dates: start: 20140418, end: 20140418

REACTIONS (2)
  - Mydriasis [Recovered/Resolved]
  - Accidental exposure to product [Unknown]
